FAERS Safety Report 10759978 (Version 1)
Quarter: 2015Q1

REPORT INFORMATION
  Report Type: Spontaneous
  Country: US (occurrence: US)
  Receive Date: 20150203
  Receipt Date: 20150203
  Transmission Date: 20150721
  Serious: Yes (Other)
  Sender: FDA-Public Use
  Company Number: PHHY2015US009381

PATIENT
  Age: 8 Year
  Sex: Female

DRUGS (8)
  1. CYTARABINE. [Suspect]
     Active Substance: CYTARABINE
     Indication: B PRECURSOR TYPE ACUTE LEUKAEMIA
     Route: 065
  2. 6-MERCAPTOPURINE [Suspect]
     Active Substance: MERCAPTOPURINE
     Indication: B PRECURSOR TYPE ACUTE LEUKAEMIA
     Route: 065
  3. CYCLOPHOSPHAMIDE. [Suspect]
     Active Substance: CYCLOPHOSPHAMIDE
     Indication: B PRECURSOR TYPE ACUTE LEUKAEMIA
     Route: 065
  4. PEG/L-ASPARAGINASE [Suspect]
     Active Substance: PEGASPARGASE
     Indication: B PRECURSOR TYPE ACUTE LEUKAEMIA
     Route: 065
  5. THIOGUANINE [Suspect]
     Active Substance: THIOGUANINE
     Indication: B PRECURSOR TYPE ACUTE LEUKAEMIA
     Route: 065
  6. DOXORUBICIN [Suspect]
     Active Substance: DOXORUBICIN
     Indication: B PRECURSOR TYPE ACUTE LEUKAEMIA
     Route: 065
  7. VINCRISTINE [Suspect]
     Active Substance: VINCRISTINE
     Indication: B PRECURSOR TYPE ACUTE LEUKAEMIA
     Route: 065
  8. METHOTREXATE [Suspect]
     Active Substance: METHOTREXATE
     Indication: B PRECURSOR TYPE ACUTE LEUKAEMIA
     Route: 065

REACTIONS (7)
  - Skin erosion [Not Recovered/Not Resolved]
  - Papule [Not Recovered/Not Resolved]
  - Scar [Not Recovered/Not Resolved]
  - Hypertrichosis [Not Recovered/Not Resolved]
  - Milia [Not Recovered/Not Resolved]
  - Scab [Not Recovered/Not Resolved]
  - Porphyria non-acute [Not Recovered/Not Resolved]
